FAERS Safety Report 19300768 (Version 6)
Quarter: 2021Q3

REPORT INFORMATION
  Report Type: Report from Study
  Country: BR (occurrence: BR)
  Receive Date: 20210525
  Receipt Date: 20210813
  Transmission Date: 20211014
  Serious: Yes (Hospitalization)
  Sender: FDA-Public Use
  Company Number: BR-EISAI MEDICAL RESEARCH-EC-2021-093223

PATIENT
  Age: 65 Year
  Sex: Female
  Weight: 42.2 kg

DRUGS (15)
  1. PEMBROLIZUMAB. [Suspect]
     Active Substance: PEMBROLIZUMAB
     Dosage: ON DAY 1 OF EACH CYCLE EVERY 3 WEEKS
     Route: 042
     Dates: start: 20210203
  2. GLIFAGE [Concomitant]
     Active Substance: METFORMIN HYDROCHLORIDE
     Dates: start: 201701
  3. CLOBETASOL PROPIONATE. [Concomitant]
     Active Substance: CLOBETASOL PROPIONATE
     Dates: start: 20201223
  4. HYOSCINE HYDROBROMIDE TRIHYDRATE;METAMIZOLE SODIUM [Concomitant]
     Dates: start: 20200827
  5. LENVATINIB [Suspect]
     Active Substance: LENVATINIB
     Indication: ENDOMETRIAL CANCER
     Dosage: STARTING DOSE AT 20 MG, FLUCTUATED DOSAGE
     Route: 048
     Dates: start: 20200909, end: 20210112
  6. LENVATINIB [Suspect]
     Active Substance: LENVATINIB
     Route: 048
     Dates: start: 20210120
  7. CHLORTHALIDONE. [Concomitant]
     Active Substance: CHLORTHALIDONE
     Dates: start: 20201231, end: 202102
  8. CHOLECALCIFEROL [Concomitant]
     Active Substance: CHOLECALCIFEROL
     Dates: start: 201701
  9. CIPROFLOXACIN. [Concomitant]
     Active Substance: CIPROFLOXACIN
     Dates: start: 20200917
  10. DENOSUMAB [Concomitant]
     Active Substance: DENOSUMAB
     Dates: start: 201801
  11. UREA. [Concomitant]
     Active Substance: UREA
     Dates: start: 20201224
  12. PEMBROLIZUMAB. [Suspect]
     Active Substance: PEMBROLIZUMAB
     Dosage: ON DAY 1 OF EACH CYCLE EVERY 3 WEEKS
     Route: 042
     Dates: start: 20210113, end: 20210113
  13. PEMBROLIZUMAB. [Suspect]
     Active Substance: PEMBROLIZUMAB
     Indication: ENDOMETRIAL CANCER
     Dosage: ON DAY 1 OF EACH CYCLE EVERY 3 WEEKS
     Route: 042
     Dates: start: 20200909, end: 20201223
  14. AMLODIPINE [Concomitant]
     Active Substance: AMLODIPINE BESYLATE
     Dates: start: 20201224, end: 20210615
  15. LORATADINE. [Concomitant]
     Active Substance: LORATADINE
     Dates: start: 20200930

REACTIONS (1)
  - Enterocolitis [Recovered/Resolved]

NARRATIVE: CASE EVENT DATE: 20210121
